FAERS Safety Report 6165253-0 (Version None)
Quarter: 2009Q2

REPORT INFORMATION
  Report Type: 
  Country: None (occurrence: None)
  Receive Date: 20090423
  Receipt Date: 20090415
  Transmission Date: 20091009
  Serious: Yes (Life-Threatening, Hospitalization, Congenital Anomaly)
  Sender: FDA-Public Use
  Company Number: A0640665A

PATIENT
  Sex: Male
  Weight: 3.4 kg

DRUGS (7)
  1. PAXIL CR [Suspect]
     Indication: ANXIETY
     Dosage: 12.5MG PER DAY
     Dates: start: 20031113
  2. PAROXETINE HYDROCHLORIDE [Suspect]
     Indication: ANXIETY
     Dosage: 10MG PER DAY
     Dates: start: 20050301, end: 20050501
  3. NATALCARE PLUS [Concomitant]
     Indication: PREGNANCY
     Dates: start: 20050501, end: 20051001
  4. TYLENOL [Concomitant]
     Dosage: 2CAP AS REQUIRED
     Dates: start: 20010101
  5. IBUPROFEN [Concomitant]
     Dosage: 2CAP AS REQUIRED
  6. ZOFRAN [Concomitant]
     Indication: NAUSEA
     Dates: start: 20050301, end: 20050311
  7. ALPRAZOLAM [Concomitant]

REACTIONS (12)
  - ATRIAL SEPTAL DEFECT [None]
  - CHRONIC RESPIRATORY FAILURE [None]
  - COARCTATION OF THE AORTA [None]
  - COLITIS ISCHAEMIC [None]
  - DRUG EXPOSURE DURING PREGNANCY [None]
  - INJURY [None]
  - INTERRUPTION OF AORTIC ARCH [None]
  - LUNG DISORDER [None]
  - PAIN [None]
  - PATENT DUCTUS ARTERIOSUS [None]
  - PERSISTENT FOETAL CIRCULATION [None]
  - VENTRICULAR SEPTAL DEFECT [None]
